FAERS Safety Report 16025216 (Version 2)
Quarter: 2019Q1

REPORT INFORMATION
  Report Type: Report from Study
  Country: US (occurrence: US)
  Receive Date: 20190301
  Receipt Date: 20190320
  Transmission Date: 20190418
  Serious: Yes (Other)
  Sender: FDA-Public Use
  Company Number: US-SA-2019SA057763

PATIENT
  Age: 56 Year
  Sex: Female

DRUGS (1)
  1. TERIFLUNOMIDE. [Suspect]
     Active Substance: TERIFLUNOMIDE
     Indication: MULTIPLE SCLEROSIS
     Dosage: 7 MG, QD
     Route: 048
     Dates: start: 20190118

REACTIONS (8)
  - Lithiasis [Recovered/Resolved]
  - Hepatitis [Recovered/Resolved]
  - Mass [Recovered/Resolved]
  - Vomiting [Recovered/Resolved]
  - Unevaluable event [Recovered/Resolved]
  - Nausea [Recovered/Resolved]
  - Headache [Recovered/Resolved]
  - Gallbladder disorder [Recovered/Resolved]

NARRATIVE: CASE EVENT DATE: 2019
